FAERS Safety Report 4875850-8 (Version None)
Quarter: 2006Q1

REPORT INFORMATION
  Report Type: 
  Country: None (occurrence: None)
  Receive Date: 20060106
  Receipt Date: 20051228
  Transmission Date: 20060701
  Serious: Yes (Other)
  Sender: FDA-Public Use
  Company Number: GXKR2005US02238

PATIENT
  Age: 53 Year
  Sex: Male

DRUGS (2)
  1. LORAZEPAM [Suspect]
     Indication: CONVULSION
  2. PHENYTOIN [Suspect]
     Indication: CONVULSION

REACTIONS (11)
  - ALANINE AMINOTRANSFERASE INCREASED [None]
  - ANAEMIA [None]
  - ASPARTATE AMINOTRANSFERASE INCREASED [None]
  - BLOOD ALBUMIN DECREASED [None]
  - BLOOD MAGNESIUM DECREASED [None]
  - BLOOD TEST ABNORMAL [None]
  - HAEMATOCRIT DECREASED [None]
  - HEPATIC ENZYME INCREASED [None]
  - HYPERBILIRUBINAEMIA [None]
  - PLATELET COUNT DECREASED [None]
  - TACHYCARDIA [None]
